FAERS Safety Report 8267483-0 (Version None)
Quarter: 2012Q2

REPORT INFORMATION
  Report Type: 
  Country: None (occurrence: None)
  Receive Date: 20120409
  Receipt Date: 20120405
  Transmission Date: 20120825
  Serious: Yes (Death)
  Sender: FDA-Public Use
  Company Number: PHHY2012JP026068

PATIENT
  Sex: Female

DRUGS (6)
  1. ASPIRIN [Concomitant]
     Route: 048
  2. FOSAMAX [Concomitant]
     Dosage: 35 MG, UNK
     Route: 048
     Dates: start: 20110118
  3. LIPITOR [Concomitant]
     Route: 048
  4. EXELON [Suspect]
     Indication: DEMENTIA ALZHEIMER'S TYPE
     Dosage: 4.5 MG, DAILY
     Route: 062
     Dates: start: 20111102
  5. BENIDIPINE HYDROCHLORIDE [Concomitant]
     Route: 048
  6. EXELON [Suspect]
     Dosage: 13.5 MG, DAILY
     Route: 062

REACTIONS (1)
  - DEATH [None]
